FAERS Safety Report 5572096-5 (Version None)
Quarter: 2007Q4

REPORT INFORMATION
  Report Type: 
  Country: None (occurrence: None)
  Receive Date: 20071221
  Receipt Date: 20071213
  Transmission Date: 20080405
  Serious: Yes (Hospitalization)
  Sender: FDA-Public Use
  Company Number: JP-PFIZER INC-2007099898

PATIENT
  Sex: Male
  Weight: 40 kg

DRUGS (9)
  1. VFEND [Suspect]
     Indication: BRONCHOPULMONARY ASPERGILLOSIS
     Route: 042
     Dates: start: 20070922, end: 20071016
  2. VFEND [Suspect]
     Route: 048
     Dates: start: 20071017, end: 20071022
  3. MUCODYNE [Concomitant]
     Route: 048
  4. RESPLEN [Concomitant]
     Route: 048
  5. GASCON [Concomitant]
     Route: 048
  6. MAGNESIUM OXIDE [Concomitant]
     Route: 048
  7. DAI-KENCHU-TO [Concomitant]
     Route: 048
  8. MYSLEE [Concomitant]
     Route: 048
  9. MODACIN [Concomitant]
     Route: 042
     Dates: start: 20070919, end: 20071003

REACTIONS (2)
  - HYPOCHLORAEMIA [None]
  - HYPONATRAEMIA [None]
